FAERS Safety Report 22080458 (Version 3)
Quarter: 2023Q2

REPORT INFORMATION
  Report Type: Spontaneous
  Country: PT (occurrence: PT)
  Receive Date: 20230309
  Receipt Date: 20230404
  Transmission Date: 20230722
  Serious: Yes (Hospitalization, Other)
  Sender: FDA-Public Use
  Company Number: None

PATIENT
  Age: 65 Year
  Sex: Female
  Weight: 40 kg

DRUGS (3)
  1. VORICONAZOLE [Suspect]
     Active Substance: VORICONAZOLE
     Indication: Aspergilloma
     Dosage: 200 MG, DAILY
     Route: 048
     Dates: start: 20221228
  2. VORICONAZOLE [Suspect]
     Active Substance: VORICONAZOLE
     Indication: Aspergilloma
     Dosage: 200 MG, 2X/DAY (Q12H)
     Route: 042
     Dates: start: 20230105
  3. VORICONAZOLE [Suspect]
     Active Substance: VORICONAZOLE
     Dosage: 100 MG, 1X/DAY (Q24H)
     Dates: end: 20230119

REACTIONS (5)
  - Inflammatory bowel disease [Unknown]
  - Condition aggravated [Unknown]
  - Anaemia [Recovered/Resolved]
  - Drug level above therapeutic [Unknown]
  - Off label use [Unknown]

NARRATIVE: CASE EVENT DATE: 20221228
